FAERS Safety Report 25751563 (Version 2)
Quarter: 2025Q4

REPORT INFORMATION
  Report Type: Spontaneous
  Country: US (occurrence: US)
  Receive Date: 20250902
  Receipt Date: 20251023
  Transmission Date: 20260118
  Serious: No
  Sender: VERTEX
  Company Number: US-VERTEX PHARMACEUTICALS-2025-014107

PATIENT
  Age: 19 Year
  Sex: Female

DRUGS (1)
  1. ALYFTREK [Suspect]
     Active Substance: DEUTIVACAFTOR\TEZACAFTOR\VANZACAFTOR
     Indication: Cystic fibrosis
     Dosage: 02 TABLETS (10MG VANZACAFTOR/ 50MG TEZACAFTOR/ 125MG DEUTIVACAFTOR), QD
     Route: 048
     Dates: start: 202503, end: 20250709

REACTIONS (2)
  - Aspartate aminotransferase increased [Recovered/Resolved]
  - Alanine aminotransferase increased [Recovered/Resolved]

NARRATIVE: CASE EVENT DATE: 20250423
